FAERS Safety Report 12330112 (Version 3)
Quarter: 2017Q3

REPORT INFORMATION
  Report Type: Spontaneous
  Country: JP (occurrence: JP)
  Receive Date: 20160504
  Receipt Date: 20170912
  Transmission Date: 20171127
  Serious: No
  Sender: FDA-Public Use
  Company Number: JP-ACTELION-A-CH2016-135025

PATIENT
  Age: 29 Year
  Sex: Male

DRUGS (15)
  1. BUFFERIN [Concomitant]
     Active Substance: ASPIRIN
     Dosage: 81 MG, UNK
  2. LIXIANA [Concomitant]
     Active Substance: EDOXABAN TOSYLATE
  3. BISOPROLOL FUMARATE. [Concomitant]
     Active Substance: BISOPROLOL FUMARATE
  4. OPSUMIT [Suspect]
     Active Substance: MACITENTAN
     Indication: PULMONARY ARTERIAL HYPERTENSION
     Dosage: 10 MG, OD
     Route: 048
     Dates: start: 20151020
  5. OPSUMIT [Suspect]
     Active Substance: MACITENTAN
     Dosage: 5 MG, OD
     Route: 048
     Dates: start: 20160421
  6. AMIODARONE HYDROCHLORIDE. [Concomitant]
     Active Substance: AMIODARONE HYDROCHLORIDE
  7. ASPARA POTASSIUM [Concomitant]
     Active Substance: POTASSIUM ASPARTATE
  8. ELIQUIS [Concomitant]
     Active Substance: APIXABAN
  9. SAMSCA [Concomitant]
     Active Substance: TOLVAPTAN
  10. SPIRONOLACTONE. [Concomitant]
     Active Substance: SPIRONOLACTONE
  11. PILSICAINIDE HYDROCHLORIDE [Concomitant]
     Active Substance: PILSICAINIDE HYDROCHLORIDE
  12. URSODEOXYCHOLIC ACID [Concomitant]
     Active Substance: URSODIOL
  13. FUROSEMIDE. [Concomitant]
     Active Substance: FUROSEMIDE
  14. APRINDINE HYDROCHLORIDE [Concomitant]
     Active Substance: APRINDINE HYDROCHLORIDE
  15. CARVEDILOL. [Concomitant]
     Active Substance: CARVEDILOL

REACTIONS (3)
  - Decreased appetite [Recovered/Resolved]
  - Depression [Recovering/Resolving]
  - Haemoglobin decreased [Recovered/Resolved]

NARRATIVE: CASE EVENT DATE: 20160229
